FAERS Safety Report 5239180-7 (Version None)
Quarter: 2007Q1

REPORT INFORMATION
  Report Type: 
  Country: None (occurrence: None)
  Receive Date: 20061208
  Receipt Date: 20050909
  Transmission Date: 20070707
  Serious: Yes (Other)
  Sender: FDA-Public Use
  Company Number: 2005UW13360

PATIENT
  Age: 69 Year
  Sex: Female
  Weight: 103.41 kg

DRUGS (7)
  1. CRESTOR [Suspect]
     Indication: BLOOD CHOLESTEROL INCREASED
     Dosage: 10 MG PO
     Route: 048
  2. CARDIZEM [Concomitant]
  3. FEMARA [Concomitant]
  4. DIURETIC [Concomitant]
  5. ZOMETA [Concomitant]
  6. BENADRYL [Concomitant]
  7. RADIATION [Concomitant]

REACTIONS (2)
  - MOBILITY DECREASED [None]
  - MUSCLE ATROPHY [None]
